FAERS Safety Report 8415484-1 (Version None)
Quarter: 2012Q2

REPORT INFORMATION
  Report Type: 
  Country: None (occurrence: None)
  Receive Date: 20120606
  Receipt Date: 20120604
  Transmission Date: 20120825
  Serious: Yes (Death, Other)
  Sender: FDA-Public Use
  Company Number: PHEH2005US014207

PATIENT
  Sex: Female

DRUGS (19)
  1. ZOMETA [Suspect]
     Indication: METASTASES TO BONE
     Dosage: 4 MG MONTHLY
     Dates: start: 20020425, end: 20041018
  2. TAXOTERE [Concomitant]
     Dosage: UNK UKN, UNK
     Dates: start: 20060125, end: 20060816
  3. CALCIUM CARBONATE [Concomitant]
  4. MOTRIN [Concomitant]
     Indication: PAIN
  5. XELODA [Concomitant]
     Dosage: UNK UKN, UNK
     Dates: start: 20060125, end: 20060816
  6. DIFLUCAN [Concomitant]
  7. TAXOTERE [Concomitant]
     Dosage: UNK UKN, UNK
     Dates: start: 20050523
  8. XELODA [Concomitant]
     Indication: BREAST CANCER
     Dosage: 1500 MG, BID (2 WEEKS ON AND 1 WEEK OFF)
     Dates: start: 20030604, end: 20041018
  9. GEMZAR [Concomitant]
     Dosage: 1000 MG/M2, UNK
     Dates: start: 20060830
  10. TAXOTERE [Concomitant]
     Dosage: UNK UKN, UNK
     Dates: start: 20051013, end: 20060104
  11. EXEMESTANE [Concomitant]
     Indication: BREAST CANCER METASTATIC
     Dosage: UNK UKN, UNK
     Dates: start: 20041101, end: 20050523
  12. XELODA [Concomitant]
     Dosage: UNK UKN, UNK
     Dates: start: 20051013, end: 20060104
  13. ARIMIDEX [Concomitant]
     Indication: BREAST CANCER
     Dosage: 1 MG, QD
     Route: 048
     Dates: start: 20010413, end: 20021114
  14. AREDIA [Suspect]
     Indication: METASTASES TO BONE
     Dosage: 90 MG  OVER 2 HOURS MONTHLY
     Dates: start: 20010525, end: 20020321
  15. TAXOTERE [Concomitant]
     Indication: BREAST CANCER
     Dosage: 67 MG, UNK
     Dates: start: 20040223, end: 20041018
  16. XELODA [Concomitant]
     Dosage: UNK UKN, UNK
     Dates: start: 20050523
  17. FASLODEX [Concomitant]
     Indication: BREAST CANCER METASTATIC
     Dosage: 250 MG MONTHLY
     Route: 030
     Dates: start: 20021114, end: 20030416
  18. TENORMIN [Concomitant]
     Indication: HYPERTENSION
     Dosage: 25 MG, QD
     Route: 048
     Dates: start: 19950101
  19. RADIATION THERAPY [Concomitant]

REACTIONS (48)
  - NEOPLASM MALIGNANT [None]
  - LYMPHADENOPATHY [None]
  - TOOTH FRACTURE [None]
  - SKIN FISSURES [None]
  - UPPER RESPIRATORY TRACT INFECTION [None]
  - VAGINAL INFECTION [None]
  - DEATH [None]
  - ORAL DISORDER [None]
  - RADIATION INJURY [None]
  - NEUROPATHY PERIPHERAL [None]
  - METASTASES TO LIVER [None]
  - FATIGUE [None]
  - SINUSITIS [None]
  - ALVEOLAR OSTEITIS [None]
  - BLOOD PRESSURE INCREASED [None]
  - ALOPECIA [None]
  - ARTHRALGIA [None]
  - PALMAR-PLANTAR ERYTHRODYSAESTHESIA SYNDROME [None]
  - IMPAIRED HEALING [None]
  - BONE PAIN [None]
  - COUGH [None]
  - LYMPHADENOPATHY MEDIASTINAL [None]
  - NEOPLASM PROGRESSION [None]
  - SPINAL CORD COMPRESSION [None]
  - INTERVERTEBRAL DISC DISORDER [None]
  - PULMONARY MASS [None]
  - ASTHENOPIA [None]
  - INFLUENZA LIKE ILLNESS [None]
  - DYSGEUSIA [None]
  - DIARRHOEA [None]
  - EPISTAXIS [None]
  - OSTEONECROSIS OF JAW [None]
  - BONE DISORDER [None]
  - MENINGEAL NEOPLASM [None]
  - ASTHENIA [None]
  - NAUSEA [None]
  - RADIATION OESOPHAGITIS [None]
  - FACE AND MOUTH X-RAY ABNORMAL [None]
  - ELECTROCARDIOGRAM ST-T CHANGE [None]
  - PLEURAL EFFUSION [None]
  - DIZZINESS [None]
  - TINNITUS [None]
  - DECREASED APPETITE [None]
  - FALL [None]
  - LUNG NEOPLASM [None]
  - METASTASES TO THE MEDIASTINUM [None]
  - PRIMARY SEQUESTRUM [None]
  - DENTAL CARIES [None]
